FAERS Safety Report 9079517 (Version 1)
Quarter: 2013Q1

REPORT INFORMATION
  Report Type: Report from Study
  Country: BR (occurrence: BR)
  Receive Date: 20130215
  Receipt Date: 20130215
  Transmission Date: 20140127
  Serious: Yes (Other)
  Sender: FDA-Public Use
  Company Number: BR-ABBOTT-13P-020-1048763-00

PATIENT
  Sex: Female
  Weight: 87 kg

DRUGS (8)
  1. HUMIRA [Suspect]
     Indication: RHEUMATOID ARTHRITIS
     Route: 058
     Dates: start: 20091201
  2. ARAVA [Concomitant]
     Indication: ARTHRITIS
     Route: 048
     Dates: start: 2009
  3. ALDOMET [Concomitant]
     Indication: HYPERTENSION
     Dosage: 500 MG DAILY (2 TABLETS DAILY IF ALTERATION)
     Route: 048
     Dates: start: 1998
  4. PROPRANOLOL [Concomitant]
     Indication: HYPERTENSION
     Route: 048
     Dates: start: 1998
  5. CLORANA [Concomitant]
     Indication: HYPERTENSION
     Route: 048
     Dates: start: 1998
  6. PANTOPRAZOLE [Concomitant]
     Indication: GASTRIC DISORDER
     Dosage: 40 MG DAILY (IN FASTING)
     Route: 048
     Dates: start: 2010
  7. FORASEQ [Concomitant]
     Indication: HYPERSENSITIVITY
     Route: 050
     Dates: start: 201202
  8. FORASEQ [Concomitant]
     Indication: ASTHMA

REACTIONS (6)
  - Skin papilloma [Recovered/Resolved]
  - Asthma [Recovering/Resolving]
  - Influenza [Recovered/Resolved]
  - Pyrexia [Recovered/Resolved]
  - Fatigue [Recovered/Resolved]
  - Cough [Recovering/Resolving]
